FAERS Safety Report 23814325 (Version 1)
Quarter: 2024Q2

REPORT INFORMATION
  Report Type: Spontaneous
  Country: OM (occurrence: OM)
  Receive Date: 20240503
  Receipt Date: 20240503
  Transmission Date: 20240715
  Serious: Yes (Other)
  Sender: FDA-Public Use
  Company Number: OM-SUN PHARMACEUTICAL INDUSTRIES LTD-2024RR-444889

PATIENT
  Age: 34 Year
  Sex: Female

DRUGS (3)
  1. METFORMIN [Suspect]
     Active Substance: METFORMIN HYDROCHLORIDE
     Indication: Hyperglycaemia
     Dosage: 1000 MILLIGRAM, BID
     Route: 065
  2. GLICLAZIDE [Suspect]
     Active Substance: GLICLAZIDE
     Indication: Hyperglycaemia
     Dosage: 60 MILLIGRAM, QD
     Route: 065
  3. SITAGLIPTIN [Suspect]
     Active Substance: SITAGLIPTIN
     Indication: Hyperglycaemia
     Dosage: UNK
     Route: 065

REACTIONS (2)
  - Drug ineffective [Unknown]
  - Weight decreased [Unknown]
